FAERS Safety Report 19139602 (Version 1)
Quarter: 2021Q2

REPORT INFORMATION
  Report Type: Spontaneous
  Country: CA (occurrence: CA)
  Receive Date: 20210415
  Receipt Date: 20210415
  Transmission Date: 20210717
  Serious: Yes (Hospitalization)
  Sender: FDA-Public Use
  Company Number: CA-PFIZER INC-2021386607

PATIENT
  Age: 8 Year
  Sex: Male

DRUGS (6)
  1. CYTARABINE. [Suspect]
     Active Substance: CYTARABINE
     Dosage: UNK
  2. PROCYTOX [Suspect]
     Active Substance: CYCLOPHOSPHAMIDE
     Dosage: UNK
  3. VINCRISTINE SULFATE. [Suspect]
     Active Substance: VINCRISTINE SULFATE
     Dosage: UNK
  4. LANVIS [Suspect]
     Active Substance: THIOGUANINE ANHYDROUS
     Dosage: UNK
  5. ATRIANCE [Suspect]
     Active Substance: NELARABINE
     Dosage: UNK
  6. ONCASPAR [Suspect]
     Active Substance: PEGASPARGASE
     Dosage: UNK

REACTIONS (2)
  - Pyrexia [Unknown]
  - Neutropenia [Unknown]
